FAERS Safety Report 25388089 (Version 3)
Quarter: 2025Q3

REPORT INFORMATION
  Report Type: Report from Study
  Country: US (occurrence: US)
  Receive Date: 20250603
  Receipt Date: 20250808
  Transmission Date: 20251020
  Serious: Yes (Other)
  Sender: EMD SERONO INC
  Company Number: US-Merck Healthcare KGaA-2025027388

PATIENT
  Sex: Male

DRUGS (4)
  1. REBIF [Suspect]
     Active Substance: INTERFERON BETA-1A
     Indication: Multiple sclerosis
     Dates: start: 20170330, end: 20180711
  2. REBIF [Suspect]
     Active Substance: INTERFERON BETA-1A
     Dates: start: 20181009, end: 20190207
  3. REBIF [Suspect]
     Active Substance: INTERFERON BETA-1A
     Dates: start: 20190916, end: 20191128
  4. REBIF [Suspect]
     Active Substance: INTERFERON BETA-1A
     Dates: start: 20201117, end: 20240527

REACTIONS (2)
  - Blood pressure increased [Unknown]
  - Product use issue [Unknown]
